FAERS Safety Report 7201545-1 (Version None)
Quarter: 2010Q4

REPORT INFORMATION
  Report Type: 
  Country: None (occurrence: None)
  Receive Date: 20101229
  Receipt Date: 20101221
  Transmission Date: 20110411
  Serious: Yes (Hospitalization)
  Sender: FDA-Public Use
  Company Number: JP-SHIRE-SPV1-2010-02128

PATIENT
  Age: 58 Year
  Sex: Male

DRUGS (12)
  1. FOSRENOL [Suspect]
     Indication: HYPERPHOSPHATAEMIA
     Dosage: 750 MG DAILY DOSE
     Route: 048
     Dates: start: 20100624, end: 20101105
  2. FOSRENOL [Suspect]
     Dosage: 1500 MG DAILY
     Route: 048
     Dates: start: 20101119
  3. LIPOVAS                            /00499301/ [Concomitant]
     Indication: LIPIDS ABNORMAL
     Dosage: 5 MG, UNKNOWN
     Route: 048
  4. NORVASC [Concomitant]
     Indication: HYPERTENSION
     Dosage: 10 MG, UNKNOWN
     Route: 048
  5. ADALAT CC [Concomitant]
     Indication: HYPERTENSION
     Dosage: 40 MG, UNKNOWN
     Route: 048
     Dates: start: 20050101
  6. CARDENALIN [Concomitant]
     Indication: HYPERTENSION
     Dosage: 4 MG, UNKNOWN
     Route: 048
     Dates: start: 20090418
  7. ALDOMET                            /00000101/ [Concomitant]
     Indication: HYPERTENSION
     Dosage: 500 MG, UNKNOWN
     Route: 048
  8. NU-LOTAN [Concomitant]
     Indication: HYPERTENSION
     Dosage: 100 MG, UNKNOWN
     Route: 048
     Dates: start: 20101119
  9. LASIX [Concomitant]
     Indication: OEDEMA DUE TO RENAL DISEASE
     Dosage: 120 MG, UNKNOWN
     Route: 048
     Dates: start: 20090611
  10. ASPIRIN [Concomitant]
     Indication: SHUNT OCCLUSION
     Dosage: 100 MG, UNKNOWN
     Route: 048
     Dates: start: 20101126
  11. LACTULOSE [Concomitant]
     Indication: CONSTIPATION
     Dosage: 30 ML, UNKNOWN
     Route: 048
     Dates: start: 20101118
  12. OLMETEC [Concomitant]
     Indication: HYPERTENSION
     Dosage: 40 MG, UNKNOWN
     Route: 048
     Dates: start: 20101120

REACTIONS (2)
  - COLITIS ISCHAEMIC [None]
  - DIVERTICULUM INTESTINAL HAEMORRHAGIC [None]
